FAERS Safety Report 9614522 (Version 1)
Quarter: 2013Q4

REPORT INFORMATION
  Report Type: Spontaneous
  Country: US (occurrence: None)
  Receive Date: 20131009
  Receipt Date: 20131009
  Transmission Date: 20140711
  Serious: Yes (Life-Threatening, Hospitalization)
  Sender: FDA-Public Use
  Company Number: None

PATIENT
  Age: 64 Year
  Sex: Male
  Weight: 74.4 kg

DRUGS (1)
  1. DIVALPROEX [Suspect]
     Indication: SCHIZOPHRENIA, PARANOID TYPE
     Dosage: 500 MG  UD  PO
     Route: 048
     Dates: start: 20121205, end: 20130927

REACTIONS (2)
  - Hyperammonaemic encephalopathy [None]
  - Hepatic encephalopathy [None]
